FAERS Safety Report 9500357 (Version 1)
Quarter: 2013Q3

REPORT INFORMATION
  Report Type: Spontaneous
  Country: US (occurrence: None)
  Receive Date: 20130903
  Receipt Date: 20130903
  Transmission Date: 20140515
  Serious: Yes (Other)
  Sender: FDA-Public Use
  Company Number: AUR-APL-2013-07154

PATIENT
  Sex: Male

DRUGS (2)
  1. FLUOXETINE [Suspect]
  2. NITROFURANTOIN [Suspect]

REACTIONS (1)
  - No therapeutic response [None]
